FAERS Safety Report 17421102 (Version 1)
Quarter: 2020Q1

REPORT INFORMATION
  Report Type: Spontaneous
  Country: DK (occurrence: DK)
  Receive Date: 20200214
  Receipt Date: 20200214
  Transmission Date: 20200409
  Serious: Yes (Death)
  Sender: FDA-Public Use
  Company Number: NVSC2020DK036098

PATIENT
  Age: 81 Year
  Sex: Female

DRUGS (3)
  1. XARELTO [Concomitant]
     Active Substance: RIVAROXABAN
     Indication: ATRIAL FIBRILLATION
     Dosage: 20 MG, QD
     Route: 048
     Dates: start: 20160713, end: 20191027
  2. TERBINAFIN ACTAVIS [Concomitant]
     Indication: ONYCHOMYCOSIS
     Dosage: 250 MG, QD
     Route: 048
     Dates: start: 20191002, end: 20191027
  3. METHOTREXATE. [Suspect]
     Active Substance: METHOTREXATE
     Indication: RHEUMATOID ARTHRITIS
     Dosage: 25 MG, QW
     Route: 048
     Dates: start: 20140812, end: 20191027

REACTIONS (4)
  - Renal failure [Fatal]
  - Bone marrow failure [Fatal]
  - Sepsis [Fatal]
  - Leukopenia [Fatal]

NARRATIVE: CASE EVENT DATE: 20191027
